FAERS Safety Report 17478703 (Version 1)
Quarter: 2020Q1

REPORT INFORMATION
  Report Type: Report from Study
  Country: FR (occurrence: FR)
  Receive Date: 20200228
  Receipt Date: 20200228
  Transmission Date: 20200409
  Serious: Yes (Hospitalization)
  Sender: FDA-Public Use
  Company Number: FR-CELGENEUS-FRA-20200209210

PATIENT
  Age: 69 Year
  Sex: Male

DRUGS (2)
  1. VIDAZA [Suspect]
     Active Substance: AZACITIDINE
     Indication: MYELODYSPLASTIC SYNDROME
     Dosage: 145 MILLIGRAM
     Route: 058
     Dates: start: 20190730, end: 20190805
  2. VIDAZA [Suspect]
     Active Substance: AZACITIDINE
     Dosage: 130 MILLIGRAM
     Route: 058
     Dates: start: 20200207, end: 20200211

REACTIONS (1)
  - Mastoiditis [Not Recovered/Not Resolved]

NARRATIVE: CASE EVENT DATE: 20200221
